FAERS Safety Report 9825785 (Version 3)
Quarter: 2014Q2

REPORT INFORMATION
  Report Type: Spontaneous
  Country: US (occurrence: US)
  Receive Date: 20140117
  Receipt Date: 20140623
  Transmission Date: 20141212
  Serious: No
  Sender: FDA-Public Use
  Company Number: US-PFIZER INC-2014011275

PATIENT
  Age: 64 Year
  Sex: Female

DRUGS (1)
  1. XALKORI [Suspect]
     Indication: NON-SMALL CELL LUNG CANCER
     Dosage: 250 MG, 2X/DAY (250MG BID)
     Route: 048
     Dates: start: 20131016

REACTIONS (3)
  - Disease progression [Unknown]
  - Non-small cell lung cancer [Unknown]
  - Liver function test abnormal [Unknown]
